FAERS Safety Report 9716690 (Version 6)
Quarter: 2016Q4

REPORT INFORMATION
  Report Type: Report from Study
  Country: None (occurrence: CA)
  Receive Date: 20131127
  Receipt Date: 20161214
  Transmission Date: 20170207
  Serious: Yes (Hospitalization, Other)
  Sender: FDA-Public Use
  Company Number: CA-ABBVIE-13P-028-1171303-00

PATIENT
  Age: 64 Year
  Sex: Male
  Weight: 74.91 kg

DRUGS (8)
  1. HUMIRA [Suspect]
     Active Substance: ADALIMUMAB
     Indication: CROHN^S DISEASE
     Route: 058
     Dates: start: 20091022, end: 20131027
  2. HUMIRA [Suspect]
     Active Substance: ADALIMUMAB
     Route: 058
     Dates: start: 20131124
  3. HUMIRA [Suspect]
     Active Substance: ADALIMUMAB
     Route: 058
  4. PREDNISONE. [Concomitant]
     Active Substance: PREDNISONE
     Indication: CROHN^S DISEASE
     Dosage: UNIT DOSE=40MG, TO BE REDUCED BY 5MG EVERY WEEK
     Route: 048
     Dates: end: 20131008
  5. ENTOCORT [Concomitant]
     Active Substance: BUDESONIDE
     Indication: HEADACHE
     Route: 048
  6. METHOTREXATE. [Concomitant]
     Active Substance: METHOTREXATE
     Indication: CROHN^S DISEASE
     Route: 048
     Dates: end: 201310
  7. TYLENOL [Concomitant]
     Active Substance: ACETAMINOPHEN
     Indication: HEADACHE
     Route: 048
  8. ENTOCORT [Concomitant]
     Active Substance: BUDESONIDE
     Indication: STEROID THERAPY

REACTIONS (7)
  - Drug ineffective [Not Recovered/Not Resolved]
  - Pyrexia [Recovered/Resolved]
  - Frustration tolerance decreased [Not Recovered/Not Resolved]
  - Crohn^s disease [Recovering/Resolving]
  - Umbilical hernia [Unknown]
  - Abdominal adhesions [Unknown]
  - Inappropriate schedule of drug administration [Recovered/Resolved]

NARRATIVE: CASE EVENT DATE: 201611
